FAERS Safety Report 20876370 (Version 3)
Quarter: 2022Q3

REPORT INFORMATION
  Report Type: Spontaneous
  Country: US (occurrence: US)
  Receive Date: 20220526
  Receipt Date: 20220901
  Transmission Date: 20221026
  Serious: Yes (Hospitalization, Other)
  Sender: FDA-Public Use
  Company Number: US-BRISTOL-MYERS SQUIBB COMPANY-2022-034300

PATIENT
  Age: 87 Year
  Sex: Female
  Weight: 50.8 kg

DRUGS (2)
  1. REVLIMID [Suspect]
     Active Substance: LENALIDOMIDE
     Indication: Plasma cell myeloma
     Route: 048
     Dates: start: 20220315
  2. REVLIMID [Suspect]
     Active Substance: LENALIDOMIDE
     Dosage: DAILY FOR 21DAYS AND THEN 7 DAYS OFF
     Route: 048
     Dates: end: 20220825

REACTIONS (8)
  - Malignant neoplasm progression [Unknown]
  - Fall [Unknown]
  - Faeces soft [Unknown]
  - Fatigue [Not Recovered/Not Resolved]
  - Faeces hard [Unknown]
  - Muscular weakness [Unknown]
  - Cystitis [Unknown]
  - Pain [Unknown]
